FAERS Safety Report 15090100 (Version 1)
Quarter: 2018Q2

REPORT INFORMATION
  Report Type: Spontaneous
  Country: GB (occurrence: GB)
  Receive Date: 20180629
  Receipt Date: 20180629
  Transmission Date: 20180711
  Serious: Yes (Other)
  Sender: FDA-Public Use
  Company Number: GB-AUROBINDO-AUR-APL-2018-024634

PATIENT
  Sex: Male

DRUGS (2)
  1. PAROXETINE. [Suspect]
     Active Substance: PAROXETINE
     Dosage: 40 MILLIGRAM
     Dates: start: 2017
  2. PAROXETINE. [Suspect]
     Active Substance: PAROXETINE
     Indication: PRODUCT USED FOR UNKNOWN INDICATION
     Dosage: 20 MG ONCE A DAY IN THE MORNING
     Dates: start: 2017

REACTIONS (20)
  - Tremor [Unknown]
  - Irritability [Unknown]
  - Anxiety [Unknown]
  - Nausea [Unknown]
  - Psychotic disorder [Unknown]
  - Nightmare [Unknown]
  - Sleep disorder [Unknown]
  - Palpitations [Unknown]
  - Headache [Unknown]
  - Visual impairment [Unknown]
  - Agitation [Unknown]
  - Hyperhidrosis [Unknown]
  - Diarrhoea [Unknown]
  - Confusional state [Unknown]
  - Dizziness [Unknown]
  - Affect lability [Unknown]
  - Withdrawal syndrome [Unknown]
  - Tinnitus [Unknown]
  - Abnormal dreams [Unknown]
  - Paraesthesia [Unknown]

NARRATIVE: CASE EVENT DATE: 2007
